FAERS Safety Report 11571261 (Version 2)
Quarter: 2015Q4

REPORT INFORMATION
  Report Type: Spontaneous
  Country: US (occurrence: US)
  Receive Date: 20150916
  Receipt Date: 20151027
  Transmission Date: 20160304
  Serious: No
  Sender: FDA-Public Use
  Company Number: US-ELI_LILLY_AND_COMPANY-US200909004945

PATIENT
  Sex: Female

DRUGS (1)
  1. FORTEO [Suspect]
     Active Substance: TERIPARATIDE
     Dosage: 20 UG, DAILY (1/D)
     Route: 065
     Dates: start: 20090826

REACTIONS (6)
  - Abdominal pain [Unknown]
  - Arthralgia [Unknown]
  - Joint stiffness [Unknown]
  - Fear [Unknown]
  - Contusion [Unknown]
  - Constipation [Unknown]

NARRATIVE: CASE EVENT DATE: 2009
